FAERS Safety Report 5128349-8 (Version None)
Quarter: 2006Q4

REPORT INFORMATION
  Report Type: 
  Country: None (occurrence: None)
  Receive Date: 20061011
  Receipt Date: 20060927
  Transmission Date: 20070319
  Serious: Yes (Death)
  Sender: FDA-Public Use
  Company Number: S06-CZE-04182-01

PATIENT
  Age: 46 Year
  Sex: Male

DRUGS (1)
  1. CIPRALEX (ESCITALOPRAM) [Suspect]
     Indication: AFFECTIVE DISORDER
     Dosage: 10 MG QD PO
     Route: 048

REACTIONS (2)
  - DEPRESSION [None]
  - LARYNGEAL CANCER [None]
